FAERS Safety Report 17593314 (Version 1)
Quarter: 2020Q1

REPORT INFORMATION
  Report Type: Spontaneous
  Country: US (occurrence: US)
  Receive Date: 20200327
  Receipt Date: 20200327
  Transmission Date: 20200409
  Serious: Yes (Other)
  Sender: FDA-Public Use
  Company Number: US-GLAXOSMITHKLINE-US2020053236

PATIENT
  Age: 88 Year
  Sex: Male

DRUGS (1)
  1. VENTOLIN HFA [Suspect]
     Active Substance: ALBUTEROL SULFATE
     Indication: SINUSITIS
     Dosage: UNK EVERY 4 HOURS ONE TO TWO PUFFS AS NEEDED
     Route: 055

REACTIONS (6)
  - Off label use [Unknown]
  - Pneumonia [Recovered/Resolved]
  - Wrong technique in product usage process [Unknown]
  - Dyspnoea [Unknown]
  - Product use in unapproved indication [Unknown]
  - Drug ineffective for unapproved indication [Unknown]

NARRATIVE: CASE EVENT DATE: 20200115
